FAERS Safety Report 8534010-X (Version None)
Quarter: 2012Q3

REPORT INFORMATION
  Report Type: 
  Country: None (occurrence: None)
  Receive Date: 20120724
  Receipt Date: 20120709
  Transmission Date: 20120928
  Serious: Yes (Life-Threatening, Hospitalization, Congenital Anomaly, Other)
  Sender: FDA-Public Use
  Company Number: DE-WATSON-2012-12038

PATIENT
  Sex: Female
  Weight: 3.5 kg

DRUGS (2)
  1. FOLIC ACID [Suspect]
     Indication: PROPHYLAXIS OF NEURAL TUBE DEFECT
     Dosage: 5 MG, DAILY
     Route: 064
  2. LAMOTRIGINE [Suspect]
     Indication: EPILEPSY
     Dosage: 500 MG/DAILY; 275 MG/DAILY DURING 1ST TRIMESTER
     Route: 064
     Dates: end: 20110212

REACTIONS (6)
  - NEONATAL RESPIRATORY DISTRESS SYNDROME [None]
  - BRADYCARDIA NEONATAL [None]
  - TALIPES [None]
  - DYSMORPHISM [None]
  - CONGENITAL URETERIC ANOMALY [None]
  - ATRIAL SEPTAL DEFECT [None]
